FAERS Safety Report 24281943 (Version 1)
Quarter: 2024Q3

REPORT INFORMATION
  Report Type: Spontaneous
  Country: US (occurrence: None)
  Receive Date: 20240903
  Receipt Date: 20240903
  Transmission Date: 20241017
  Serious: Yes (Other)
  Sender: Public
  Company Number: None

PATIENT
  Age: 53 Year
  Sex: Female
  Weight: 83.7 kg

DRUGS (1)
  1. ZEPBOUND [Suspect]
     Active Substance: TIRZEPATIDE
     Indication: Weight decreased
     Dates: start: 20240524

REACTIONS (4)
  - Oropharyngeal pain [None]
  - Laryngitis [None]
  - Respiratory tract infection [None]
  - Pain [None]

NARRATIVE: CASE EVENT DATE: 20240830
